FAERS Safety Report 25536680 (Version 2)
Quarter: 2025Q3

REPORT INFORMATION
  Report Type: Spontaneous
  Country: GB (occurrence: GB)
  Receive Date: 20250709
  Receipt Date: 20250718
  Transmission Date: 20251021
  Serious: Yes (Other)
  Sender: ELI LILLY AND COMPANY
  Company Number: GB-ELI_LILLY_AND_COMPANY-GB202506025477

PATIENT
  Age: 46 Year
  Sex: Male

DRUGS (1)
  1. MOUNJARO [Suspect]
     Active Substance: TIRZEPATIDE
     Indication: Product used for unknown indication
     Route: 065
     Dates: start: 202504

REACTIONS (5)
  - Blindness transient [Unknown]
  - Burning sensation [Unknown]
  - Back pain [Unknown]
  - Vision blurred [Unknown]
  - Photophobia [Unknown]
